FAERS Safety Report 6671994-9 (Version None)
Quarter: 2010Q2

REPORT INFORMATION
  Report Type: 
  Country: None (occurrence: None)
  Receive Date: 20100405
  Receipt Date: 20100318
  Transmission Date: 20101027
  Serious: Yes (Death, Other)
  Sender: FDA-Public Use
  Company Number: MC201000094

PATIENT
  Age: 81 Year
  Sex: Male

DRUGS (17)
  1. ANGIOMAX [Suspect]
     Indication: HEPARIN-INDUCED THROMBOCYTOPENIA
     Dosage: 0.15 MG/KG, HR, INTRAVENOUS, 0.15 MG/KG, HR, INTRAVENOUS
     Route: 042
     Dates: start: 20100304, end: 20100309
  2. ANGIOMAX [Suspect]
     Indication: HEPARIN-INDUCED THROMBOCYTOPENIA
     Dosage: 0.15 MG/KG, HR, INTRAVENOUS, 0.15 MG/KG, HR, INTRAVENOUS
     Route: 042
     Dates: start: 20100310
  3. HEPARIN [Concomitant]
  4. ALBUTEROL (SALBUTAMOL SULFATE) [Concomitant]
  5. AMIODARONE HCL [Concomitant]
  6. CARVEDILOL [Concomitant]
  7. DOCUSATE SODIUM (DOCUSATE SODIUM) [Concomitant]
  8. HYDRALAZINE HCL [Concomitant]
  9. INSULIN (INSULIN) [Concomitant]
  10. IPRATROPIUM (IPRATROPIUM BROMIDE) [Concomitant]
  11. VERSED [Concomitant]
  12. HALDOL [Concomitant]
  13. NEXIUM [Concomitant]
  14. ANTIBIOTICS [Concomitant]
  15. OCTREOTIDE ACETATE [Concomitant]
  16. SEDATIVES [Concomitant]
  17. PAIN MEDICATIONS [Concomitant]

REACTIONS (5)
  - ACTIVATED PARTIAL THROMBOPLASTIN TIME PROLONGED [None]
  - GASTROINTESTINAL HAEMORRHAGE [None]
  - HAEMODYNAMIC INSTABILITY [None]
  - HAEMOGLOBIN DECREASED [None]
  - PLATELET COUNT INCREASED [None]
